FAERS Safety Report 4555870-3 (Version None)
Quarter: 2005Q1

REPORT INFORMATION
  Report Type: 
  Country: None (occurrence: None)
  Receive Date: 20050111
  Receipt Date: 20041130
  Transmission Date: 20050727
  Serious: No
  Sender: FDA-Public Use
  Company Number: 2004S1000270

PATIENT
  Age: 69 Year
  Sex: Male
  Weight: 82.7 kg

DRUGS (7)
  1. CUBICIN [Suspect]
     Indication: ARTHRITIS INFECTIVE
     Dosage: 470 MG;Q24H;IV
     Route: 042
     Dates: start: 20041013, end: 20041020
  2. VANCOMYCIN [Concomitant]
  3. ARANESP [Concomitant]
  4. ASPIRIN [Concomitant]
  5. IMODIUM [Concomitant]
  6. MULTI-VITAMIN [Concomitant]
  7. GLEEVEC [Concomitant]

REACTIONS (1)
  - BLOOD CREATINE PHOSPHOKINASE INCREASED [None]
